FAERS Safety Report 17829482 (Version 4)
Quarter: 2020Q2

REPORT INFORMATION
  Report Type: Spontaneous
  Country: US (occurrence: US)
  Receive Date: 20200527
  Receipt Date: 20200605
  Transmission Date: 20200714
  Serious: Yes (Other)
  Sender: FDA-Public Use
  Company Number: US-PFIZER INC-2020208086

PATIENT
  Age: 74 Year
  Sex: Female

DRUGS (1)
  1. PREMARIN [Suspect]
     Active Substance: ESTROGENS, CONJUGATED
     Indication: HORMONE REPLACEMENT THERAPY
     Dosage: 1.25 MG, 1X/DAY (ONCE A DAY IN THE MORNING)
     Route: 048

REACTIONS (8)
  - Fibromyalgia [Unknown]
  - Confusional state [Unknown]
  - Mood swings [Not Recovered/Not Resolved]
  - Depressed mood [Unknown]
  - Coeliac disease [Unknown]
  - Withdrawal syndrome [Unknown]
  - Hyperhidrosis [Unknown]
  - Feeling abnormal [Unknown]
